FAERS Safety Report 9827475 (Version 4)
Quarter: 2014Q1

REPORT INFORMATION
  Report Type: Spontaneous
  Country: US (occurrence: US)
  Receive Date: 20140117
  Receipt Date: 20140313
  Transmission Date: 20141002
  Serious: Yes (Hospitalization, Other)
  Sender: FDA-Public Use
  Company Number: US-009507513-1202USA00439

PATIENT
  Sex: Male

DRUGS (2)
  1. PROPECIA [Suspect]
     Indication: ALOPECIA
     Dosage: 1 MG, QD
     Route: 048
     Dates: start: 20080103, end: 20080916
  2. PROPECIA [Suspect]
     Indication: HAIR TRANSPLANT

REACTIONS (10)
  - Surgery [Unknown]
  - Cognitive disorder [Not Recovered/Not Resolved]
  - Anxiety [Unknown]
  - Spinal disorder [Unknown]
  - Sexual dysfunction [Not Recovered/Not Resolved]
  - Depression [Unknown]
  - Erectile dysfunction [Unknown]
  - Libido decreased [Unknown]
  - Ejaculation disorder [Unknown]
  - Semen volume decreased [Unknown]
